FAERS Safety Report 25419718 (Version 1)
Quarter: 2025Q2

REPORT INFORMATION
  Report Type: Spontaneous
  Country: US (occurrence: US)
  Receive Date: 20250610
  Receipt Date: 20250610
  Transmission Date: 20250717
  Serious: No
  Sender: SANOFI AVENTIS
  Company Number: US-SA-2025SA162029

PATIENT
  Age: 41 Year
  Sex: Female

DRUGS (11)
  1. DUPIXENT [Suspect]
     Active Substance: DUPILUMAB
     Indication: Dermatitis atopic
     Dosage: 300 MG, QOW
     Route: 058
     Dates: start: 20230425
  2. GLIPIZIDE [Concomitant]
     Active Substance: GLIPIZIDE
  3. IRON [Concomitant]
     Active Substance: IRON
  4. LOSARTAN POTASSIUM [Concomitant]
     Active Substance: LOSARTAN POTASSIUM
  5. MELOXICAM [Concomitant]
     Active Substance: MELOXICAM
  6. VITAMINS [Concomitant]
     Active Substance: VITAMINS
  7. OZEMPIC [Concomitant]
     Active Substance: SEMAGLUTIDE
  8. TRAMADOL HCL [Concomitant]
     Active Substance: TRAMADOL HYDROCHLORIDE
  9. VITAMIN B12 [Concomitant]
     Active Substance: CYANOCOBALAMIN
  10. VITAMIN C [Concomitant]
     Active Substance: ASCORBIC ACID
  11. VITAMIN D3 [Concomitant]
     Active Substance: CHOLECALCIFEROL

REACTIONS (1)
  - Injection site pain [Unknown]
